FAERS Safety Report 16061519 (Version 1)
Quarter: 2019Q1

REPORT INFORMATION
  Report Type: Spontaneous
  Country: US (occurrence: US)
  Receive Date: 20190211
  Receipt Date: 20190211
  Transmission Date: 20190418
  Serious: No
  Sender: FDA-Public Use
  Company Number: None

PATIENT
  Age: 52 Year
  Sex: Female

DRUGS (1)
  1. LATUDA [Suspect]
     Active Substance: LURASIDONE HYDROCHLORIDE
     Indication: PSORIASIS
     Route: 048
     Dates: start: 201810

REACTIONS (2)
  - Depression [None]
  - Therapy cessation [None]

NARRATIVE: CASE EVENT DATE: 20190211
